FAERS Safety Report 14681214 (Version 2)
Quarter: 2018Q1

REPORT INFORMATION
  Report Type: Spontaneous
  Country: IT (occurrence: IT)
  Receive Date: 20180326
  Receipt Date: 20180327
  Transmission Date: 20180509
  Serious: Yes (Other)
  Sender: FDA-Public Use
  Company Number: IT-TEVA-2018-IT-872236

PATIENT
  Sex: Female

DRUGS (2)
  1. CHLORPROMAZINE. [Suspect]
     Active Substance: CHLORPROMAZINE
     Indication: CHOREA
     Dosage: 1 MG/KG DAILY; 1 MG/KG/DAY
     Route: 065
  2. PREDNISONE. [Suspect]
     Active Substance: PREDNISONE
     Indication: CHOREA
     Dosage: 1 MG/KG DAILY; 1 MG/KG/DAY
     Route: 065

REACTIONS (1)
  - Parkinsonism [Unknown]
